FAERS Safety Report 16491518 (Version 1)
Quarter: 2019Q2

REPORT INFORMATION
  Report Type: Spontaneous
  Country: CA (occurrence: CA)
  Receive Date: 20190628
  Receipt Date: 20190628
  Transmission Date: 20190711
  Serious: Yes (Other)
  Sender: FDA-Public Use
  Company Number: CA-AUROBINDO-AUR-APL-2019-036680

PATIENT

DRUGS (3)
  1. PAROXETINE. [Suspect]
     Active Substance: PAROXETINE
     Indication: ANXIETY
  2. PAROXETINE. [Suspect]
     Active Substance: PAROXETINE
     Indication: PANIC ATTACK
     Dosage: UNK
     Route: 048
  3. PAROXETINE. [Suspect]
     Active Substance: PAROXETINE
     Indication: DEPRESSION
     Dosage: UNK
     Route: 065

REACTIONS (10)
  - Malaise [Unknown]
  - Anger [Unknown]
  - Thinking abnormal [Unknown]
  - Diarrhoea [Unknown]
  - Electric shock [Unknown]
  - Irritability [Unknown]
  - Restlessness [Unknown]
  - Withdrawal syndrome [Unknown]
  - Disability [Unknown]
  - Vomiting [Unknown]
